FAERS Safety Report 9041885 (Version 1)
Quarter: 2013Q1

REPORT INFORMATION
  Report Type: Report from Study
  Country: US (occurrence: US)
  Receive Date: 20130129
  Receipt Date: 20130129
  Transmission Date: 20140127
  Serious: No
  Sender: FDA-Public Use
  Company Number: US-ABBOTT-12P-163-0901929-00

PATIENT
  Age: 44 Year
  Sex: Female

DRUGS (8)
  1. HUMIRA 40 MG/0.8 ML PEN [Suspect]
     Indication: PSORIASIS
     Dates: start: 20111117, end: 20120213
  2. LISINOPRIL [Concomitant]
     Indication: HYPERTENSION
     Dosage: DAILY
  3. PAXIL [Concomitant]
     Indication: ANXIETY
  4. MULTIVITAMINS [Concomitant]
     Indication: VITAMIN SUPPLEMENTATION
  5. VITAMIN A [Concomitant]
     Indication: VITAMIN SUPPLEMENTATION
  6. VITAMIN D [Concomitant]
     Indication: VITAMIN SUPPLEMENTATION
  7. BETACAROTINL [Concomitant]
     Indication: VITAMIN SUPPLEMENTATION
  8. CINNAMON [Concomitant]
     Indication: MEDICAL DIET
     Dosage: CAPSULE

REACTIONS (1)
  - Drug ineffective [Not Recovered/Not Resolved]
